FAERS Safety Report 16906859 (Version 1)
Quarter: 2019Q4

REPORT INFORMATION
  Report Type: Spontaneous
  Country: US (occurrence: US)
  Receive Date: 20191011
  Receipt Date: 20191011
  Transmission Date: 20200122
  Serious: No
  Sender: FDA-Public Use
  Company Number: US-ASTRAZENECA-2019SF41578

PATIENT
  Age: 70 Year
  Sex: Male

DRUGS (11)
  1. BRILINTA [Suspect]
     Active Substance: TICAGRELOR
     Dosage: 180.0MG UNKNOWN
     Route: 048
     Dates: start: 20191001, end: 20191001
  2. LANSOPRAZOLE DR [Concomitant]
     Active Substance: LANSOPRAZOLE
  3. MUCINEX DR [Concomitant]
  4. ROSUVASTATIN. [Suspect]
     Active Substance: ROSUVASTATIN
     Dosage: 40.0MG UNKNOWN
     Route: 048
  5. ASPIRIN. [Concomitant]
     Active Substance: ASPIRIN
  6. METOPROLOL TARTRATE. [Suspect]
     Active Substance: METOPROLOL TARTRATE
     Dosage: 25.0MG UNKNOWN
     Route: 065
  7. NORVASK [Concomitant]
     Active Substance: AMLODIPINE BESYLATE
  8. ISOSORBIDE MONOTRATE XR [Concomitant]
  9. IMDUR XR [Concomitant]
  10. DULOXETINE DR [Concomitant]
     Active Substance: DULOXETINE
  11. NITROSTAT [Concomitant]
     Active Substance: NITROGLYCERIN

REACTIONS (2)
  - Movement disorder [Unknown]
  - Restlessness [Unknown]
